FAERS Safety Report 25134780 (Version 1)
Quarter: 2025Q1

REPORT INFORMATION
  Report Type: Spontaneous
  Country: US (occurrence: None)
  Receive Date: 20250327
  Receipt Date: 20250327
  Transmission Date: 20250409
  Serious: Yes (Disabling)
  Sender: FDA-CTU
  Company Number: None

PATIENT
  Age: 17 Year
  Sex: Female
  Weight: 99 kg

DRUGS (11)
  1. SUMATRIPTAN [Suspect]
     Active Substance: SUMATRIPTAN
     Indication: Migraine
     Route: 048
     Dates: start: 20240228, end: 20240228
  2. MONTELUKAST [Concomitant]
     Active Substance: MONTELUKAST
  3. ALBUTEROL [Concomitant]
     Active Substance: ALBUTEROL
  4. SULFATE INHALER [Concomitant]
  5. HAPPY LIGHT [Concomitant]
  6. CETIRIZINE [Concomitant]
     Active Substance: CETIRIZINE HYDROCHLORIDE
  7. VITAMIN D3 [Concomitant]
     Active Substance: CHOLECALCIFEROL
  8. MELATONIN [Concomitant]
     Active Substance: MELATONIN
  9. ACETAMINOPHEN [Concomitant]
     Active Substance: ACETAMINOPHEN
  10. EXCEDRIN MIGRAINE (CAFFEINE, ASPIRIN, ACETAMINOPHEN) [Concomitant]
  11. Wood betony and poppy seed tea [Concomitant]

REACTIONS (9)
  - Headache [None]
  - Burning sensation [None]
  - Hypoaesthesia [None]
  - Shock [None]
  - Paraesthesia [None]
  - Pain in extremity [None]
  - Anxiety [None]
  - Flat affect [None]
  - Asthenia [None]

NARRATIVE: CASE EVENT DATE: 20240228
